FAERS Safety Report 9176817 (Version 2)
Quarter: 2013Q2

REPORT INFORMATION
  Report Type: Spontaneous
  Country: AR (occurrence: AR)
  Receive Date: 20130321
  Receipt Date: 20130408
  Transmission Date: 20140414
  Serious: Yes (Other)
  Sender: FDA-Public Use
  Company Number: PHHY2013AR027280

PATIENT
  Sex: Female

DRUGS (1)
  1. EXELON PATCH [Suspect]
     Indication: MEMORY IMPAIRMENT
     Dosage: 9.5 MG, DAILY
     Route: 062
     Dates: start: 2009, end: 201211

REACTIONS (3)
  - General physical health deterioration [Not Recovered/Not Resolved]
  - Incontinence [Not Recovered/Not Resolved]
  - Aggression [Not Recovered/Not Resolved]
